FAERS Safety Report 5217814-0 (Version None)
Quarter: 2007Q1

REPORT INFORMATION
  Report Type: 
  Country: None (occurrence: None)
  Receive Date: 20070124
  Receipt Date: 20070117
  Transmission Date: 20070707
  Serious: Yes (Hospitalization)
  Sender: FDA-Public Use
  Company Number: JP-BOEHRINGER INGELHEIM PHARMACEUTICALS, INC.-2007-BP-00887NB

PATIENT
  Age: 28 Day
  Sex: Male

DRUGS (7)
  1. VIRAMUNE [Suspect]
     Indication: HIV INFECTION
     Route: 048
     Dates: start: 20040922, end: 20040923
  2. NEVIRAPINE [Suspect]
     Route: 048
     Dates: start: 20040925, end: 20040925
  3. RETROVIR [Suspect]
     Indication: HIV INFECTION
     Route: 065
     Dates: start: 20040922, end: 20040930
  4. ZIDOVUDINE [Suspect]
     Route: 042
     Dates: start: 20040923, end: 20041118
  5. EPIVIR [Suspect]
     Indication: HIV INFECTION
     Route: 048
     Dates: start: 20040922, end: 20040930
  6. LAMIVUDINE [Suspect]
     Route: 048
     Dates: start: 20040928, end: 20041118
  7. NELFINAVIR MESILATE [Suspect]
     Route: 048
     Dates: start: 20040928, end: 20041118

REACTIONS (2)
  - ANAEMIA [None]
  - EPILEPSY [None]
